FAERS Safety Report 5967937-3 (Version None)
Quarter: 2008Q4

REPORT INFORMATION
  Report Type: 
  Country: None (occurrence: None)
  Receive Date: 20081121
  Receipt Date: 20081121
  Transmission Date: 20090506
  Serious: Yes (Death, Life-Threatening, Hospitalization)
  Sender: FDA-Public Use
  Company Number: None

PATIENT
  Sex: Male

DRUGS (2)
  1. PEG-INTRON [Suspect]
     Indication: HEPATITIS C
     Dates: start: 20080214, end: 20080816
  2. REBETOL [Suspect]
     Dates: start: 20080214, end: 20080816

REACTIONS (6)
  - ABDOMINAL INFECTION [None]
  - ASCITES [None]
  - HEPATORENAL SYNDROME [None]
  - HYPOTENSION [None]
  - METASTASES TO LUNG [None]
  - PERITONITIS [None]
